FAERS Safety Report 21486251 (Version 1)
Quarter: 2022Q4

REPORT INFORMATION
  Report Type: Report from Study
  Country: US (occurrence: US)
  Receive Date: 20221020
  Receipt Date: 20221020
  Transmission Date: 20230113
  Serious: Yes (Other)
  Sender: FDA-Public Use
  Company Number: US-BoehringerIngelheim-2021-BI-113262

PATIENT
  Age: 64 Year
  Sex: Female

DRUGS (2)
  1. OFEV [Suspect]
     Active Substance: NINTEDANIB
     Indication: Pulmonary fibrosis
     Route: 048
     Dates: end: 20220905
  2. OFEV [Suspect]
     Active Substance: NINTEDANIB
     Route: 048
     Dates: start: 20221014

REACTIONS (11)
  - COVID-19 pneumonia [Not Recovered/Not Resolved]
  - Diarrhoea [Not Recovered/Not Resolved]
  - Alopecia [Not Recovered/Not Resolved]
  - Liver function test increased [Not Recovered/Not Resolved]
  - Abdominal pain upper [Recovering/Resolving]
  - Pneumonia [Unknown]
  - Sinusitis [Unknown]
  - Abdominal discomfort [Unknown]
  - Nasal congestion [Unknown]
  - Insomnia [Unknown]
  - Secretion discharge [Unknown]

NARRATIVE: CASE EVENT DATE: 20210601
